FAERS Safety Report 8592884 (Version 3)
Quarter: 2013Q2

REPORT INFORMATION
  Report Type: Spontaneous
  Country: US (occurrence: US)
  Receive Date: 20120604
  Receipt Date: 20130617
  Transmission Date: 20140414
  Serious: Yes (Other)
  Sender: FDA-Public Use
  Company Number: US-ASTRAZENECA-2012SE34662

PATIENT
  Sex: Female
  Weight: 93 kg

DRUGS (5)
  1. NEXIUM [Suspect]
     Indication: HYPERCHLORHYDRIA
     Route: 048
  2. NEXIUM [Suspect]
     Indication: DYSPEPSIA
     Route: 048
  3. NEXIUM [Suspect]
     Indication: HYPERCHLORHYDRIA
     Route: 048
     Dates: start: 19970316, end: 20130507
  4. NEXIUM [Suspect]
     Indication: DYSPEPSIA
     Route: 048
     Dates: start: 19970316, end: 20130507
  5. TUMS [Concomitant]

REACTIONS (5)
  - Convulsion [Unknown]
  - Osteoporosis [Unknown]
  - Arthritis [Unknown]
  - Rectal haemorrhage [Unknown]
  - Multiple fractures [Unknown]
